FAERS Safety Report 7368594-4 (Version None)
Quarter: 2011Q1

REPORT INFORMATION
  Report Type: 
  Country: None (occurrence: None)
  Receive Date: 20110310
  Receipt Date: 20110228
  Transmission Date: 20110831
  Serious: Yes (Life-Threatening, Hospitalization)
  Sender: FDA-Public Use
  Company Number: 2011SP009832

PATIENT
  Age: 79 Year
  Sex: Male

DRUGS (5)
  1. HEPARIN [Concomitant]
  2. CLOPIDOGREL [Concomitant]
  3. SIMVASTATIN [Concomitant]
  4. EPTIFIBATIDE [Suspect]
     Indication: PERCUTANEOUS CORONARY INTERVENTION
     Dosage: 6.2 ML; IV
     Route: 042
     Dates: start: 20110215, end: 20110215
  5. ASPIRIN [Concomitant]

REACTIONS (13)
  - RENAL COLIC [None]
  - HYPERTENSION [None]
  - THROMBOCYTOPENIA [None]
  - SUBCUTANEOUS HAEMATOMA [None]
  - CORONARY ARTERY STENOSIS [None]
  - HAEMORRHAGE [None]
  - HAEMATURIA [None]
  - PYREXIA [None]
  - ACUTE MYOCARDIAL INFARCTION [None]
  - INFUSION SITE HAEMORRHAGE [None]
  - ANGINA PECTORIS [None]
  - CHILLS [None]
  - HYPERSENSITIVITY [None]
